FAERS Safety Report 4692810-0 (Version None)
Quarter: 2005Q2

REPORT INFORMATION
  Report Type: 
  Country: None (occurrence: None)
  Receive Date: 20050617
  Receipt Date: 20050608
  Transmission Date: 20051028
  Serious: Yes (Death, Hospitalization)
  Sender: FDA-Public Use
  Company Number: HU-ROCHE-407074

PATIENT
  Age: 70 Year
  Sex: Male

DRUGS (1)
  1. XELODA [Suspect]
     Indication: COLORECTAL CANCER
     Dosage: ADMINISTERED DAILY FOR TWO WEEKS FOLLOWED BY A WEEKS REST.
     Route: 048
     Dates: start: 20050419

REACTIONS (5)
  - ANURIA [None]
  - BLOOD GLUCOSE INCREASED [None]
  - DIARRHOEA [None]
  - NAUSEA [None]
  - RENAL FUNCTION TEST ABNORMAL [None]
